FAERS Safety Report 5933178-9 (Version None)
Quarter: 2008Q4

REPORT INFORMATION
  Report Type: 
  Country: None (occurrence: None)
  Receive Date: 20081023
  Receipt Date: 20060822
  Transmission Date: 20090506
  Serious: Yes (Hospitalization, Other)
  Sender: FDA-Public Use
  Company Number: 2006AL002565

PATIENT
  Age: 11 Month
  Sex: Female
  Weight: 8.5 kg

DRUGS (5)
  1. IBUPROFEN TABLETS [Suspect]
     Indication: PYREXIA
     Dosage: 50 MG; BID; PO
     Route: 048
     Dates: start: 20060719, end: 20060723
  2. CALCIUM RESONIUM [Concomitant]
  3. CEFOTAXIME SODIUM [Concomitant]
  4. ALBUTEROL SULFATE [Concomitant]
  5. TRIMETHOPRIM [Concomitant]

REACTIONS (1)
  - PERITONEAL DIALYSIS [None]
